FAERS Safety Report 8015317-1 (Version None)
Quarter: 2011Q4

REPORT INFORMATION
  Report Type: 
  Country: None (occurrence: None)
  Receive Date: 20111223
  Receipt Date: 20111215
  Transmission Date: 20120403
  Serious: Yes (Other)
  Sender: FDA-Public Use
  Company Number: 1000026326

PATIENT
  Sex: Male

DRUGS (3)
  1. VIIBRYD [Suspect]
     Dosage: 20 MG (20 MG, 1 IN 1 D)
     Dates: start: 20110101
  2. VIIBRYD [Suspect]
     Dosage: 10 MG (10 MG, 1 IN 1 D)
     Dates: start: 20110101, end: 20110101
  3. TRAZODONE HCL [Suspect]

REACTIONS (1)
  - PSYCHOTIC DISORDER [None]
